FAERS Safety Report 7877828-9 (Version None)
Quarter: 2011Q4

REPORT INFORMATION
  Report Type: 
  Country: None (occurrence: None)
  Receive Date: 20111031
  Receipt Date: 20111031
  Transmission Date: 20120403
  Serious: Yes (Other)
  Sender: FDA-Public Use
  Company Number: None

PATIENT
  Age: 68 Year
  Sex: Male
  Weight: 97.522 kg

DRUGS (1)
  1. ZETIA [Suspect]
     Indication: DRUG THERAPY
     Dosage: 20 MG
     Dates: start: 20080210, end: 20111029

REACTIONS (3)
  - VOMITING [None]
  - DIZZINESS [None]
  - DYSPNOEA [None]
